FAERS Safety Report 7136016-4 (Version None)
Quarter: 2010Q4

REPORT INFORMATION
  Report Type: 
  Country: None (occurrence: None)
  Receive Date: 20101204
  Receipt Date: 20101119
  Transmission Date: 20110411
  Serious: Yes (Hospitalization, Other)
  Sender: FDA-Public Use
  Company Number: ES-BAYER-201046724GPV

PATIENT

DRUGS (2)
  1. NEXAVAR [Suspect]
     Route: 048
     Dates: start: 20100101
  2. HEPARINA [Concomitant]
     Indication: THROMBOSIS PROPHYLAXIS

REACTIONS (1)
  - CHEST PAIN [None]
